FAERS Safety Report 25389978 (Version 1)
Quarter: 2025Q2

REPORT INFORMATION
  Report Type: Spontaneous
  Country: US (occurrence: None)
  Receive Date: 20250602
  Receipt Date: 20250602
  Transmission Date: 20250716
  Serious: Yes (Hospitalization)
  Sender: FDA-CTU
  Company Number: None

PATIENT
  Sex: Male

DRUGS (5)
  1. LENALIDOMIDE [Suspect]
     Active Substance: LENALIDOMIDE
     Indication: Plasma cell myeloma
     Dosage: FREQUENCY : DAILY;?
     Route: 048
  2. MAXALT-MLT TAB [Concomitant]
  3. NEXIUM CAP [Concomitant]
  4. VALIUM TAB [Concomitant]
  5. VITAMIN C TAB [Concomitant]

REACTIONS (1)
  - Hospitalisation [None]
